FAERS Safety Report 4300005-5 (Version None)
Quarter: 2004Q1

REPORT INFORMATION
  Report Type: 
  Country: None (occurrence: None)
  Receive Date: 20040218
  Receipt Date: 20040205
  Transmission Date: 20041129
  Serious: Yes (Hospitalization)
  Sender: FDA-Public Use
  Company Number: DE-JNJFOC-20040201243

PATIENT
  Age: 36 Year
  Sex: Female
  Weight: 58 kg

DRUGS (5)
  1. REMICADE [Suspect]
     Indication: CROHN'S DISEASE
     Dosage: THIS PATIENT DID NOT RECEIVE REMICADE
  2. MESALAZINE (MESALAZINE) [Concomitant]
  3. AZATHIOPRINE (AZATHIOPRINE) UNKNOWN [Concomitant]
  4. PANTOPRAZOLE (PANTOPRAZOLE) UNKNOWN [Concomitant]
  5. CALCIUM (CALCIUM) UNKNOWN [Concomitant]

REACTIONS (2)
  - CONDITION AGGRAVATED [None]
  - CROHN'S DISEASE [None]
